FAERS Safety Report 13960435 (Version 1)
Quarter: 2017Q3

REPORT INFORMATION
  Report Type: Spontaneous
  Country: US (occurrence: None)
  Receive Date: 20170912
  Receipt Date: 20170912
  Transmission Date: 20171128
  Serious: Yes (Other)
  Sender: FDA-Public Use
  Company Number: None

PATIENT
  Age: 74 Year
  Sex: Female

DRUGS (7)
  1. VITAMIN D3 [Concomitant]
     Active Substance: CHOLECALCIFEROL
  2. OMEPRAZOLE. [Concomitant]
     Active Substance: OMEPRAZOLE
  3. PROCHLOPER [Concomitant]
  4. ZOMETA [Concomitant]
     Active Substance: ZOLEDRONIC ACID
  5. MULTI VIT [Concomitant]
  6. LETROZOLE. [Concomitant]
     Active Substance: LETROZOLE
  7. IBRANCE [Suspect]
     Active Substance: PALBOCICLIB
     Indication: NEOPLASM MALIGNANT
     Route: 048
     Dates: start: 20161223

REACTIONS (1)
  - Therapy cessation [None]

NARRATIVE: CASE EVENT DATE: 2017
